FAERS Safety Report 8283910-7 (Version None)
Quarter: 2012Q2

REPORT INFORMATION
  Report Type: 
  Country: None (occurrence: None)
  Receive Date: 20120413
  Receipt Date: 20120409
  Transmission Date: 20120825
  Serious: No
  Sender: FDA-Public Use
  Company Number: US-BAYER-2012-035551

PATIENT

DRUGS (4)
  1. MOTRIN [Concomitant]
     Dosage: UNK
  2. IBUPROFEN [Concomitant]
     Indication: HEADACHE
     Dosage: UNK
  3. ALEVE (CAPLET) [Suspect]
     Route: 048
  4. ACETAMINOPHEN [Concomitant]
     Dosage: UNK

REACTIONS (1)
  - HEADACHE [None]
